FAERS Safety Report 24902941 (Version 1)
Quarter: 2025Q1

REPORT INFORMATION
  Report Type: Spontaneous
  Country: JP (occurrence: JP)
  Receive Date: 20250130
  Receipt Date: 20250130
  Transmission Date: 20250408
  Serious: Yes (Hospitalization, Other)
  Sender: NOVITIUM PHARMA
  Company Number: JP-NOVITIUMPHARMA-2025JPNVP00254

PATIENT
  Sex: Female

DRUGS (1)
  1. DEXAMETHASONE [Suspect]
     Active Substance: DEXAMETHASONE
     Indication: Asthma
     Route: 048

REACTIONS (6)
  - Cellulitis [Unknown]
  - Subcutaneous abscess [Unknown]
  - Device related infection [Unknown]
  - Immunosuppression [Unknown]
  - Steroid diabetes [Recovering/Resolving]
  - Bacterial infection [Unknown]
